FAERS Safety Report 9257489 (Version 1)
Quarter: 2013Q2

REPORT INFORMATION
  Report Type: Spontaneous
  Country: US (occurrence: None)
  Receive Date: 20130424
  Receipt Date: 20130424
  Transmission Date: 20140414
  Serious: Yes (Hospitalization)
  Sender: FDA-Public Use
  Company Number: None

PATIENT
  Age: 67 Year
  Sex: Male
  Weight: 89 kg

DRUGS (1)
  1. ALFA INTERFERON 2B [Suspect]
     Dates: end: 20121116

REACTIONS (2)
  - Pain in extremity [None]
  - Blood phosphorus increased [None]
